FAERS Safety Report 21188610 (Version 1)
Quarter: 2022Q3

REPORT INFORMATION
  Report Type: Report from Study
  Country: DE (occurrence: DE)
  Receive Date: 20220809
  Receipt Date: 20220809
  Transmission Date: 20221027
  Serious: Yes (Other)
  Sender: FDA-Public Use
  Company Number: DE-ABBVIE-22K-062-4495203-00

PATIENT
  Age: 64 Year
  Sex: Female

DRUGS (1)
  1. RINVOQ [Suspect]
     Active Substance: UPADACITINIB
     Indication: Axial spondyloarthritis
     Route: 048
     Dates: start: 20210130

REACTIONS (4)
  - Basal cell carcinoma [Not Recovered/Not Resolved]
  - Immune-mediated neuropathy [Not Recovered/Not Resolved]
  - Monoplegia [Not Recovered/Not Resolved]
  - Axial spondyloarthritis [Not Recovered/Not Resolved]

NARRATIVE: CASE EVENT DATE: 20220601
